FAERS Safety Report 7681432-5 (Version None)
Quarter: 2011Q3

REPORT INFORMATION
  Report Type: 
  Country: None (occurrence: None)
  Receive Date: 20110812
  Receipt Date: 20110804
  Transmission Date: 20111222
  Serious: Yes (Other)
  Sender: FDA-Public Use
  Company Number: US-ROCHE-786744

PATIENT
  Sex: Female
  Weight: 61.2 kg

DRUGS (1)
  1. ACCUTANE [Suspect]
     Indication: ACNE
     Dosage: FROM: FEB 2000 TO MAY 2000
     Route: 065
     Dates: start: 19980101, end: 20000101

REACTIONS (7)
  - GASTRIC ULCER [None]
  - COLITIS ULCERATIVE [None]
  - PROCTITIS [None]
  - INJURY [None]
  - INFLAMMATORY BOWEL DISEASE [None]
  - INTESTINAL HAEMORRHAGE [None]
  - IRRITABLE BOWEL SYNDROME [None]
